FAERS Safety Report 9759097 (Version 1)
Quarter: 2013Q4

REPORT INFORMATION
  Report Type: Spontaneous
  Country: US (occurrence: None)
  Receive Date: 20131216
  Receipt Date: 20131216
  Transmission Date: 20140711
  Serious: Yes (Disabling, Other)
  Sender: FDA-Public Use
  Company Number: 163-21880-12110920(0)

PATIENT
  Age: 74 Year
  Sex: Male

DRUGS (1)
  1. REVLIMID (LENALIDOMIDE) (10 MILLIGRAM CAPSULES) [Suspect]
     Indication: AMYLOIDOSIS
     Dosage: 10  MG, 1 IN 1 D, PO?5 MG , 1 IN 1 D, PO

REACTIONS (2)
  - Visual acuity reduced [None]
  - Eye swelling [None]
